FAERS Safety Report 23330938 (Version 1)
Quarter: 2023Q4

REPORT INFORMATION
  Report Type: Other
  Country: CN (occurrence: CN)
  Receive Date: 20231222
  Receipt Date: 20231222
  Transmission Date: 20240110
  Serious: Yes (Other)
  Sender: FDA-Public Use
  Company Number: CN-INNOVENT BIOLOGICS-INN2023006694

PATIENT

DRUGS (2)
  1. PEMAZYRE [Suspect]
     Active Substance: PEMIGATINIB
     Indication: Hepatobiliary cancer
     Dosage: 13.5 MG, QD,TAKING FOR 2 WEEKS, DISCONTINUATION FOR 1 WEEK
     Route: 065
     Dates: start: 20230502, end: 20230725
  2. PEMAZYRE [Suspect]
     Active Substance: PEMIGATINIB
     Dosage: 9 MG, QD,TAKING FOR 2 WEEKS, DISCONTINUATION FOR 1 WEEK
     Route: 065
     Dates: start: 20230819, end: 20231213

REACTIONS (4)
  - Xerophthalmia [Recovering/Resolving]
  - Hyperphosphataemia [Recovering/Resolving]
  - Central serous chorioretinopathy [Unknown]
  - Palmar-plantar erythrodysaesthesia syndrome [Recovering/Resolving]

NARRATIVE: CASE EVENT DATE: 20230501
